FAERS Safety Report 5118846-3 (Version None)
Quarter: 2006Q3

REPORT INFORMATION
  Report Type: 
  Country: None (occurrence: None)
  Receive Date: 20060927
  Receipt Date: 20060918
  Transmission Date: 20061208
  Serious: Yes (Other)
  Sender: FDA-Public Use
  Company Number: 2006105977

PATIENT
  Age: 57 Year
  Sex: Female
  Weight: 65.318 kg

DRUGS (6)
  1. GEODON [Suspect]
     Dates: start: 20060613, end: 20060829
  2. ZOLOFT [Concomitant]
  3. WELLBUTRIN XL [Concomitant]
  4. KLONOPIN [Concomitant]
  5. DURAGESIC-100 [Concomitant]
  6. VICODIN [Concomitant]

REACTIONS (2)
  - SEDATION [None]
  - TARDIVE DYSKINESIA [None]
